FAERS Safety Report 7874947-8 (Version None)
Quarter: 2011Q4

REPORT INFORMATION
  Report Type: 
  Country: None (occurrence: None)
  Receive Date: 20111031
  Receipt Date: 20111026
  Transmission Date: 20120403
  Serious: Yes (Death)
  Sender: FDA-Public Use
  Company Number: US-JNJFOC-20111012408

PATIENT
  Sex: Female

DRUGS (3)
  1. HYDROCODONE BITARTRATE [Concomitant]
     Indication: PAIN
     Dosage: 7.5/ 500 UNITS  UNSPECIFIED
     Route: 048
  2. HYDROCODONE BITARTRATE [Concomitant]
     Dosage: 7.5/ 500 UNITS  UNSPECIFIED
     Route: 048
  3. FENTANYL-100 [Suspect]
     Indication: ABDOMINAL PAIN
     Route: 062
     Dates: start: 20100203

REACTIONS (1)
  - ACCIDENTAL OVERDOSE [None]
